FAERS Safety Report 10340211 (Version 1)
Quarter: 2014Q3

REPORT INFORMATION
  Report Type: Other
  Country: PT (occurrence: PT)
  Receive Date: 20140724
  Receipt Date: 20140724
  Transmission Date: 20150326
  Serious: Yes (Hospitalization)
  Sender: FDA-Public Use
  Company Number: PT-BRISTOL-MYERS SQUIBB COMPANY-21217096

PATIENT
  Age: 74 Year
  Sex: Male

DRUGS (12)
  1. CILAZAPRIL [Concomitant]
     Active Substance: CILAZAPRIL ANHYDROUS
  2. ALLOPURINOL. [Concomitant]
     Active Substance: ALLOPURINOL
  3. CEFTRIAXONE. [Concomitant]
     Active Substance: CEFTRIAXONE
     Indication: LUNG INFECTION
  4. SALMETEROL + FLUTICASONE [Concomitant]
     Active Substance: FLUTICASONE PROPIONATE\SALMETEROL XINAFOATE
  5. AZITHROMYCIN [Concomitant]
     Active Substance: AZITHROMYCIN ANHYDROUS
     Indication: LUNG INFECTION
  6. EUFILINA [Concomitant]
  7. OMEPRAZOL [Concomitant]
     Active Substance: OMEPRAZOLE
  8. CHRONIC OXYGEN THERAPY [Concomitant]
  9. FUROSEMIDE. [Concomitant]
     Active Substance: FUROSEMIDE
  10. CARVEDILOL. [Concomitant]
     Active Substance: CARVEDILOL
  11. WARFARIN SODIUM. [Suspect]
     Active Substance: WARFARIN SODIUM
     Indication: RENAL FAILURE CHRONIC
  12. EPINITRIL [Concomitant]
     Active Substance: NITROGLYCERIN

REACTIONS (5)
  - Gingival bleeding [Unknown]
  - International normalised ratio increased [Unknown]
  - Renal failure acute [Not Recovered/Not Resolved]
  - Epistaxis [Unknown]
  - Haematuria [Not Recovered/Not Resolved]
